FAERS Safety Report 18261902 (Version 1)
Quarter: 2020Q3

REPORT INFORMATION
  Report Type: Spontaneous
  Country: US (occurrence: US)
  Receive Date: 20200914
  Receipt Date: 20200914
  Transmission Date: 20201103
  Serious: Yes (Death, Life-Threatening, Hospitalization)
  Sender: FDA-Public Use
  Company Number: US-MYLANLABS-2020M1078068

PATIENT
  Age: 42 Year
  Sex: Male

DRUGS (1)
  1. LOPERAMIDE [Suspect]
     Active Substance: LOPERAMIDE
     Indication: PRODUCT USED FOR UNKNOWN INDICATION
     Route: 048

REACTIONS (19)
  - Brain injury [Fatal]
  - Hypotension [Unknown]
  - Bradycardia [Unknown]
  - Aspartate aminotransferase increased [Unknown]
  - Ammonia increased [Unknown]
  - Alanine aminotransferase increased [Unknown]
  - Respiratory acidosis [Unknown]
  - Drug abuse [Fatal]
  - Seizure [Unknown]
  - Electrocardiogram QT prolonged [Unknown]
  - Torsade de pointes [Unknown]
  - Fall [Unknown]
  - Toxicity to various agents [Fatal]
  - Cardiac arrest [Recovering/Resolving]
  - Unresponsive to stimuli [Recovering/Resolving]
  - Intentional overdose [Fatal]
  - Pancreatitis acute [Fatal]
  - Encephalopathy [Unknown]
  - Blood phosphorus increased [Unknown]
